FAERS Safety Report 7407374-8 (Version None)
Quarter: 2011Q2

REPORT INFORMATION
  Report Type: 
  Country: None (occurrence: None)
  Receive Date: 20110411
  Receipt Date: 20090408
  Transmission Date: 20111010
  Serious: Yes (Other)
  Sender: FDA-Public Use
  Company Number: DE-GENENTECH-316487

PATIENT
  Age: 89 Year
  Sex: Female

DRUGS (1)
  1. LUCENTIS [Suspect]
     Indication: MACULAR DEGENERATION
     Dosage: UNK
     Route: 031
     Dates: start: 20081103

REACTIONS (7)
  - VERTIGO [None]
  - ASTHENIA [None]
  - WEIGHT DECREASED [None]
  - MALAISE [None]
  - EYE HAEMORRHAGE [None]
  - HEART VALVE CALCIFICATION [None]
  - LYMPHADENOPATHY [None]
